FAERS Safety Report 4630185-3 (Version None)
Quarter: 2005Q2

REPORT INFORMATION
  Report Type: 
  Country: None (occurrence: None)
  Receive Date: 20050408
  Receipt Date: 20050331
  Transmission Date: 20051028
  Serious: Yes (Death, Hospitalization)
  Sender: FDA-Public Use
  Company Number: PHBS2005US04565

PATIENT
  Age: 73 Year
  Sex: Male

DRUGS (3)
  1. CYCLOSPORINE [Suspect]
     Indication: HEART TRANSPLANT
     Dosage: UNK, UNK
  2. MYCOPHENOLATE MOFETIL [Suspect]
     Indication: HEART TRANSPLANT
  3. PREDNISONE [Suspect]
     Indication: HEART TRANSPLANT

REACTIONS (14)
  - APHASIA [None]
  - ASTHENIA [None]
  - CEREBRAL ATROPHY [None]
  - CEREBROVASCULAR INSUFFICIENCY [None]
  - CONFUSIONAL STATE [None]
  - CSF GLUCOSE ABNORMAL [None]
  - CSF PROTEIN ABNORMAL [None]
  - CSF WHITE BLOOD CELL COUNT POSITIVE [None]
  - FUNGUS URINE TEST POSITIVE [None]
  - LETHARGY [None]
  - MENINGITIS HISTOPLASMA [None]
  - PYREXIA [None]
  - RENAL IMPAIRMENT [None]
  - SUBDURAL EFFUSION [None]
